FAERS Safety Report 12190980 (Version 1)
Quarter: 2016Q1

REPORT INFORMATION
  Report Type: Spontaneous
  Country: US (occurrence: US)
  Receive Date: 20160318
  Receipt Date: 20160318
  Transmission Date: 20160526
  Serious: No
  Sender: FDA-Public Use
  Company Number: US-TEVA-626065USA

PATIENT
  Age: 61 Year
  Sex: Male

DRUGS (1)
  1. DULOXETINE. [Suspect]
     Active Substance: DULOXETINE
     Indication: DIABETIC NEUROPATHY
     Route: 065

REACTIONS (1)
  - Drug ineffective [Unknown]
